FAERS Safety Report 4435805-4 (Version None)
Quarter: 2004Q3

REPORT INFORMATION
  Report Type: 
  Country: None (occurrence: None)
  Receive Date: 20040826
  Receipt Date: 20040811
  Transmission Date: 20050211
  Serious: Yes (Hospitalization)
  Sender: FDA-Public Use
  Company Number: PERC20040043

PATIENT
  Age: 72 Year
  Sex: Male
  Weight: 76.6 kg

DRUGS (4)
  1. PERCOCET [Suspect]
     Indication: CANCER PAIN
     Dosage: 1 TAB Q4H PO
     Route: 048
  2. MORPHINE SULFATE [Suspect]
     Indication: CANCER PAIN
     Dosage: 15 MG Q4H PO
     Route: 048
     Dates: start: 20040101
  3. NEXIUM [Concomitant]
  4. REGLAN [Concomitant]

REACTIONS (15)
  - ASTHENIA [None]
  - BLOOD POTASSIUM DECREASED [None]
  - CONFUSIONAL STATE [None]
  - DEHYDRATION [None]
  - DIZZINESS [None]
  - HAEMATOCRIT DECREASED [None]
  - HAEMOGLOBIN DECREASED [None]
  - HYPOTENSION [None]
  - METASTASES TO BONE [None]
  - METASTASES TO LYMPH NODES [None]
  - METASTASES TO SPINE [None]
  - NAUSEA [None]
  - PROSTATE CANCER METASTATIC [None]
  - VOMITING [None]
  - WHITE BLOOD CELL COUNT DECREASED [None]
